FAERS Safety Report 9683612 (Version 1)
Quarter: 2013Q4

REPORT INFORMATION
  Report Type: Spontaneous
  Country: DE (occurrence: DE)
  Receive Date: 20131112
  Receipt Date: 20131112
  Transmission Date: 20140711
  Serious: Yes (Other)
  Sender: FDA-Public Use
  Company Number: DE-ASTRAZENECA-2013SE81502

PATIENT
  Age: 56 Year
  Sex: Male

DRUGS (22)
  1. CANDESARTAN [Suspect]
     Route: 048
     Dates: start: 20121120
  2. METOPROLOL [Suspect]
     Route: 048
  3. QUETIAPIN [Suspect]
     Route: 048
     Dates: start: 20121206, end: 20121210
  4. QUETIAPIN [Suspect]
     Route: 048
     Dates: start: 20121211, end: 20121219
  5. QUETIAPIN [Suspect]
     Route: 048
     Dates: start: 20130103, end: 20130109
  6. QUETIAPIN [Suspect]
     Route: 048
     Dates: start: 20130110, end: 20130114
  7. QUETIAPIN [Suspect]
     Route: 048
     Dates: start: 20130115
  8. VENLAFAXIN [Suspect]
     Route: 048
     Dates: start: 20121205, end: 20121208
  9. VENLAFAXIN [Suspect]
     Route: 048
     Dates: start: 20121219, end: 20121219
  10. VENLAFAXIN [Suspect]
     Route: 048
     Dates: start: 20121220
  11. INSPRA [Suspect]
     Route: 048
  12. LEVODOPA [Suspect]
     Route: 048
     Dates: start: 20121213, end: 20121216
  13. LEVODOPA [Suspect]
     Route: 048
     Dates: start: 20121217
  14. TORASEMID [Suspect]
     Route: 048
  15. EZETROL [Concomitant]
     Route: 048
  16. ZOPICLONE [Concomitant]
     Route: 048
     Dates: start: 20121205, end: 20130116
  17. ZOPICLONE [Concomitant]
     Route: 048
     Dates: start: 20130117, end: 20130121
  18. SIMVASTATIN [Concomitant]
     Route: 048
  19. PANTOPRAZOL [Concomitant]
     Route: 048
  20. ASS [Concomitant]
     Route: 048
  21. METFORMIN [Concomitant]
     Route: 048
  22. INSULIN [Concomitant]
     Route: 058

REACTIONS (2)
  - Syncope [Recovered/Resolved]
  - Hypotension [Unknown]
